FAERS Safety Report 4345677-4 (Version None)
Quarter: 2004Q2

REPORT INFORMATION
  Report Type: 
  Country: None (occurrence: None)
  Receive Date: 20040421
  Receipt Date: 20040408
  Transmission Date: 20050107
  Serious: Yes (Hospitalization)
  Sender: FDA-Public Use
  Company Number: 2004024150

PATIENT
  Age: 76 Year
  Sex: Female

DRUGS (1)
  1. DILANTIN [Suspect]
     Indication: ILL-DEFINED DISORDER

REACTIONS (5)
  - DRUG TOXICITY [None]
  - FALL [None]
  - HEMIPARESIS [None]
  - HUMERUS FRACTURE [None]
  - URINARY TRACT INFECTION [None]
